FAERS Safety Report 10617181 (Version 2)
Quarter: 2014Q4

REPORT INFORMATION
  Report Type: Spontaneous
  Country: US (occurrence: US)
  Receive Date: 20141201
  Receipt Date: 20141211
  Transmission Date: 20150529
  Serious: Yes (Death, Hospitalization)
  Sender: FDA-Public Use
  Company Number: US-UNITED THERAPEUTICS-UNT-2014-011444

PATIENT
  Sex: Female
  Weight: 56.23 kg

DRUGS (1)
  1. REMODULIN [Suspect]
     Active Substance: TREPROSTINIL
     Indication: PULMONARY ARTERIAL HYPERTENSION
     Dosage: 0.01825 ?G/KG, CONTINUING
     Route: 041
     Dates: start: 20140718

REACTIONS (3)
  - Pulmonary embolism [Unknown]
  - Influenza [Unknown]
  - Death [Fatal]

NARRATIVE: CASE EVENT DATE: 2014
